FAERS Safety Report 16278653 (Version 1)
Quarter: 2019Q2

REPORT INFORMATION
  Report Type: Not Available
  Country: US (occurrence: US)
  Receive Date: 20190506
  Receipt Date: 20190506
  Transmission Date: 20190711
  Serious: No
  Sender: FDA-Public Use
  Company Number: US-NEUROCRINE BIOSCIENCES INC.-2019NBI01087

PATIENT
  Sex: Female

DRUGS (11)
  1. PROBIOTIC [Concomitant]
     Active Substance: PROBIOTICS NOS
  2. MELOXICAM. [Concomitant]
     Active Substance: MELOXICAM
  3. HYDROCODONE [Concomitant]
     Active Substance: HYDROCODONE
  4. TYLENOL [Concomitant]
     Active Substance: ACETAMINOPHEN
  5. MELATONIN [Concomitant]
     Active Substance: MELATONIN
  6. INGREZZA [Suspect]
     Active Substance: VALBENAZINE
     Indication: PRODUCT USED FOR UNKNOWN INDICATION
     Route: 048
     Dates: start: 20180710
  7. VITAMIN D2 [Concomitant]
     Active Substance: ERGOCALCIFEROL
  8. FLONASE [Concomitant]
     Active Substance: FLUTICASONE PROPIONATE
  9. XANAX [Concomitant]
     Active Substance: ALPRAZOLAM
  10. LEVOTHYROXINE. [Concomitant]
     Active Substance: LEVOTHYROXINE
  11. TIZANIDINE. [Concomitant]
     Active Substance: TIZANIDINE

REACTIONS (2)
  - Feeling abnormal [Unknown]
  - Paraesthesia [Unknown]
